FAERS Safety Report 4263711-7 (Version None)
Quarter: 2004Q1

REPORT INFORMATION
  Report Type: 
  Country: None (occurrence: None)
  Receive Date: 20040102
  Receipt Date: 20031216
  Transmission Date: 20041129
  Serious: Yes (Other)
  Sender: FDA-Public Use
  Company Number: GBS031214176

PATIENT
  Age: 56 Year
  Sex: Male

DRUGS (1)
  1. XIGRIS [Suspect]
     Indication: SEPSIS
     Dosage: 24 UG/KG/HR/ OTHER
     Route: 050
     Dates: start: 20031201

REACTIONS (1)
  - ACUTE RESPIRATORY DISTRESS SYNDROME [None]
